FAERS Safety Report 6728633-8 (Version None)
Quarter: 2010Q2

REPORT INFORMATION
  Report Type: 
  Country: None (occurrence: None)
  Receive Date: 20100517
  Receipt Date: 20100504
  Transmission Date: 20101027
  Serious: Yes (Other)
  Sender: FDA-Public Use
  Company Number: US-ELI_LILLY_AND_COMPANY-US201003007778

PATIENT
  Age: 50 Year
  Sex: Female
  Weight: 51.247 kg

DRUGS (3)
  1. CYMBALTA [Suspect]
     Dosage: 20 MG, 2/D
     Dates: end: 20091201
  2. CYMBALTA [Suspect]
     Dosage: 30 MG, 2/D
     Dates: start: 20091201, end: 20100201
  3. CYMBALTA [Suspect]
     Dosage: 20 MG, 2/D
     Dates: start: 20100201, end: 20100301

REACTIONS (2)
  - CHEST PAIN [None]
  - HYPERTENSION [None]
